FAERS Safety Report 11371301 (Version 1)
Quarter: 2015Q3

REPORT INFORMATION
  Report Type: Spontaneous
  Country: GB (occurrence: GB)
  Receive Date: 20150812
  Receipt Date: 20150812
  Transmission Date: 20151125
  Serious: Yes (Other)
  Sender: FDA-Public Use
  Company Number: GB-ELI_LILLY_AND_COMPANY-GB201508001065

PATIENT
  Age: 31 Year
  Sex: Male

DRUGS (1)
  1. STRATTERA [Suspect]
     Active Substance: ATOMOXETINE HYDROCHLORIDE
     Indication: PRODUCT USED FOR UNKNOWN INDICATION
     Dosage: 40 MG, QD
     Dates: end: 201402

REACTIONS (12)
  - Depressed mood [Unknown]
  - Dyspnoea [Unknown]
  - Presyncope [Unknown]
  - Sleep apnoea syndrome [Unknown]
  - Feeling cold [Unknown]
  - Suicidal ideation [Unknown]
  - Feeling abnormal [Unknown]
  - Hyperhidrosis [Unknown]
  - Parosmia [Unknown]
  - Nasal congestion [Unknown]
  - Euphoric mood [Recovered/Resolved]
  - Feeling hot [Unknown]

NARRATIVE: CASE EVENT DATE: 20150713
